FAERS Safety Report 20896086 (Version 1)
Quarter: 2022Q2

REPORT INFORMATION
  Report Type: Report from Study
  Country: CN (occurrence: CN)
  Receive Date: 20220531
  Receipt Date: 20220531
  Transmission Date: 20220721
  Serious: Yes (Hospitalization)
  Sender: FDA-Public Use
  Company Number: CN-BEIGENE AUS PTY LTD-BGN-2022-005403

PATIENT
  Age: 73 Year
  Sex: Male

DRUGS (15)
  1. CARBOPLATIN [Suspect]
     Active Substance: CARBOPLATIN
     Indication: Non-small cell lung cancer metastatic
     Route: 042
     Dates: start: 20220324, end: 20220509
  2. CARBOPLATIN [Suspect]
     Active Substance: CARBOPLATIN
     Route: 042
     Dates: start: 20220418
  3. PACLITAXEL [Suspect]
     Active Substance: PACLITAXEL
     Indication: Non-small cell lung cancer metastatic
     Route: 042
     Dates: start: 20220324
  4. PACLITAXEL [Suspect]
     Active Substance: PACLITAXEL
     Route: 042
     Dates: start: 20220418
  5. AMLODIPINE BESYLATE [Concomitant]
     Active Substance: AMLODIPINE BESYLATE
     Indication: Hypertension
     Dosage: UNK
     Route: 048
     Dates: start: 2012
  6. LEUCOGEN [Concomitant]
     Active Substance: LEUCOGEN
     Indication: Drug toxicity prophylaxis
     Dosage: UNK
     Route: 048
     Dates: start: 20220325
  7. WU ZHI [Concomitant]
     Indication: Hepatic function abnormal
     Dosage: UNK
     Route: 048
     Dates: start: 20220325
  8. Compound glycyrrhizin [Concomitant]
     Indication: Hepatic function abnormal
     Dosage: UNK
     Route: 048
     Dates: start: 20220401
  9. OMEPRAZOLE [Concomitant]
     Active Substance: OMEPRAZOLE
     Indication: Chronic gastritis
     Dosage: UNK
     Route: 048
     Dates: start: 20220306
  10. TETRANDRINE, (+)- [Concomitant]
     Active Substance: TETRANDRINE, (+)-
     Indication: Neoplasm
     Dosage: UNK
     Route: 048
     Dates: start: 20220311
  11. TROPISETRON HYDROCHLORIDE [Concomitant]
     Active Substance: TROPISETRON HYDROCHLORIDE
     Indication: Drug toxicity prophylaxis
     Dosage: UNK
     Route: 042
     Dates: start: 20220324
  12. METOCLOPRAMIDE HYDROCHLORIDE [Concomitant]
     Active Substance: METOCLOPRAMIDE HYDROCHLORIDE
     Indication: Drug toxicity prophylaxis
     Dosage: UNK
     Route: 042
     Dates: start: 20220324
  13. DEXAMETHASONE SODIUM PHOSPHATE [Concomitant]
     Active Substance: DEXAMETHASONE SODIUM PHOSPHATE
     Indication: Drug toxicity prophylaxis
     Dosage: UNK
     Route: 042
     Dates: start: 20220324
  14. OMEPRAZOLE SODIUM [Concomitant]
     Active Substance: OMEPRAZOLE SODIUM
     Indication: Drug toxicity prophylaxis
     Dosage: UNK
     Route: 042
     Dates: start: 20220324
  15. PANTOPRAZOLE SODIUM [Concomitant]
     Active Substance: PANTOPRAZOLE SODIUM
     Indication: Drug toxicity prophylaxis
     Route: 065
     Dates: start: 20210331

REACTIONS (1)
  - White blood cell count decreased [Not Recovered/Not Resolved]

NARRATIVE: CASE EVENT DATE: 20220516
